FAERS Safety Report 24068336 (Version 1)
Quarter: 2024Q3

REPORT INFORMATION
  Report Type: Spontaneous
  Country: RU (occurrence: RU)
  Receive Date: 20240710
  Receipt Date: 20240710
  Transmission Date: 20241017
  Serious: No
  Sender: ROCHE
  Company Number: RU-ROCHE-3515278

PATIENT
  Age: 86 Year
  Sex: Female

DRUGS (2)
  1. FARICIMAB [Suspect]
     Active Substance: FARICIMAB
     Indication: Diabetic retinal oedema
     Route: 050
     Dates: start: 20231230
  2. AFLIBERCEPT [Concomitant]
     Active Substance: AFLIBERCEPT
     Indication: Diabetic retinal oedema
     Dosage: (5 LOADING, 4 WITH AN INTERVAL OF 2-3 MONTHS)
     Route: 050

REACTIONS (6)
  - Uveitis [Unknown]
  - Vitreous haemorrhage [Unknown]
  - Intraocular pressure increased [Unknown]
  - Corneal deposits [Unknown]
  - Discomfort [Unknown]
  - Eye movement disorder [Unknown]

NARRATIVE: CASE EVENT DATE: 20231231
